FAERS Safety Report 9454325 (Version 1)
Quarter: 2013Q3

REPORT INFORMATION
  Report Type: Spontaneous
  Country: US (occurrence: None)
  Receive Date: 20130809
  Receipt Date: 20130809
  Transmission Date: 20140515
  Serious: Yes (Other)
  Sender: FDA-Public Use
  Company Number: None

PATIENT
  Age: 67 Year
  Sex: Male
  Weight: 70.31 kg

DRUGS (6)
  1. ESCITALOPRAM [Suspect]
     Indication: ANXIETY
     Dosage: STARTING 1/2 PILL A DAY 5MG   1 A DAY -          - MOUTH
     Route: 048
     Dates: start: 20130722, end: 20130728
  2. OMEPRAZOLE [Concomitant]
  3. ADVAIR [Concomitant]
  4. ALBUTEROL [Concomitant]
  5. MULTIVITAMIN [Concomitant]
  6. VITA D [Concomitant]

REACTIONS (2)
  - Epistaxis [None]
  - Anxiety [None]
